FAERS Safety Report 23927467 (Version 1)
Quarter: 2024Q2

REPORT INFORMATION
  Report Type: Spontaneous
  Country: US (occurrence: US)
  Receive Date: 20240531
  Receipt Date: 20240531
  Transmission Date: 20240716
  Serious: Yes (Other)
  Sender: FDA-Public Use
  Company Number: US-Stemline Therapeutics, Inc.-2024ST003284

PATIENT
  Age: 62 Year
  Sex: Female

DRUGS (1)
  1. ORSERDU [Suspect]
     Active Substance: ELACESTRANT
     Indication: Product used for unknown indication
     Dosage: 345MG ONCE DAILY
     Route: 048
     Dates: start: 20230830

REACTIONS (21)
  - Pneumonia [Recovering/Resolving]
  - Pneumonitis [Recovering/Resolving]
  - Nasopharyngitis [Recovering/Resolving]
  - Respiratory disorder [Recovering/Resolving]
  - Product dose omission issue [Recovering/Resolving]
  - Chest pain [Recovering/Resolving]
  - Throat irritation [Recovering/Resolving]
  - Oesophageal irritation [Recovering/Resolving]
  - Fluid retention [Recovering/Resolving]
  - Oedema peripheral [Recovering/Resolving]
  - Loss of personal independence in daily activities [Recovering/Resolving]
  - Pain [Recovering/Resolving]
  - Productive cough [Recovering/Resolving]
  - Malaise [Unknown]
  - Musculoskeletal pain [Recovering/Resolving]
  - Nausea [Recovering/Resolving]
  - Cough [Recovering/Resolving]
  - Fatigue [Recovering/Resolving]
  - Decreased appetite [Recovering/Resolving]
  - Back pain [Recovering/Resolving]
  - Insomnia [Unknown]

NARRATIVE: CASE EVENT DATE: 20240501
